FAERS Safety Report 5777869-1 (Version None)
Quarter: 2008Q2

REPORT INFORMATION
  Report Type: 
  Country: None (occurrence: None)
  Receive Date: 20080618
  Receipt Date: 20080318
  Transmission Date: 20081010
  Serious: Yes (Other)
  Sender: FDA-Public Use
  Company Number: JP-PFIZER INC-2008020713

PATIENT
  Age: 69 Year
  Sex: Male

DRUGS (3)
  1. MIGLITOL TABLET [Suspect]
     Dosage: DAILY DOSE:150MG
     Route: 048
     Dates: start: 20070525, end: 20070704
  2. GLIMICRON [Concomitant]
     Indication: TYPE 2 DIABETES MELLITUS
     Dosage: DAILY DOSE:40MG
     Route: 048
  3. GLYSENNID [Concomitant]
     Dosage: DAILY DOSE:12MG
     Route: 048

REACTIONS (1)
  - HEPATIC FUNCTION ABNORMAL [None]
